FAERS Safety Report 6970091-2 (Version None)
Quarter: 2010Q3

REPORT INFORMATION
  Report Type: 
  Country: None (occurrence: None)
  Receive Date: 20100903
  Receipt Date: 20100820
  Transmission Date: 20110219
  Serious: Yes (Other)
  Sender: FDA-Public Use
  Company Number: 1000014348

PATIENT
  Age: 76 Year
  Sex: Female

DRUGS (7)
  1. MEMANTINE HCL [Suspect]
     Indication: DEMENTIA ALZHEIMER'S TYPE
     Dosage: 5 MG (5 MG, 1 IN 1 D) ORAL; 10 MG (10 MG, 1 IN 1 D) ORAL; 15 (15 MG, 1 IN 1 D) ORAL
     Route: 048
     Dates: start: 20100222, end: 20100228
  2. MEMANTINE HCL [Suspect]
     Indication: DEMENTIA ALZHEIMER'S TYPE
     Dosage: 5 MG (5 MG, 1 IN 1 D) ORAL; 10 MG (10 MG, 1 IN 1 D) ORAL; 15 (15 MG, 1 IN 1 D) ORAL
     Route: 048
     Dates: start: 20100301, end: 20100307
  3. MEMANTINE HCL [Suspect]
     Indication: DEMENTIA ALZHEIMER'S TYPE
     Dosage: 5 MG (5 MG, 1 IN 1 D) ORAL; 10 MG (10 MG, 1 IN 1 D) ORAL; 15 (15 MG, 1 IN 1 D) ORAL
     Route: 048
     Dates: start: 20100308, end: 20100315
  4. MEMANTINE HCL [Suspect]
     Indication: DEMENTIA ALZHEIMER'S TYPE
     Dosage: 10 MG (10 MG, 1 IN 1 D) ORAL
     Route: 048
     Dates: start: 20100316, end: 20100325
  5. ASPIRIN [Concomitant]
  6. SIMVASTATIN [Concomitant]
  7. BISOPROLOL [Concomitant]

REACTIONS (5)
  - DIZZINESS [None]
  - FATIGUE [None]
  - HYPERSOMNIA [None]
  - ILLUSION [None]
  - VISUAL ACUITY REDUCED [None]
